FAERS Safety Report 7334864-9 (Version None)
Quarter: 2011Q1

REPORT INFORMATION
  Report Type: 
  Country: None (occurrence: None)
  Receive Date: 20110301
  Receipt Date: 20110301
  Transmission Date: 20110831
  Serious: Yes (Other)
  Sender: FDA-Public Use
  Company Number: None

PATIENT
  Age: 6 Year
  Sex: Male
  Weight: 21.7727 kg

DRUGS (1)
  1. TAMIFLU [Suspect]
     Indication: INFLUENZA
     Dosage: 3.75 ML 2 X DAILY PO
     Route: 048
     Dates: start: 20110227, end: 20110227

REACTIONS (3)
  - HALLUCINATION, VISUAL [None]
  - MALAISE [None]
  - VOMITING [None]
